FAERS Safety Report 4710881-X (Version None)
Quarter: 2005Q3

REPORT INFORMATION
  Report Type: 
  Country: None (occurrence: None)
  Receive Date: 20050708
  Receipt Date: 20050629
  Transmission Date: 20060218
  Serious: Yes (Hospitalization)
  Sender: FDA-Public Use
  Company Number: 05-06-1134

PATIENT
  Age: 34 Year
  Sex: Male

DRUGS (1)
  1. CLOZAPINE [Suspect]
     Indication: SCHIZOAFFECTIVE DISORDER
     Dosage: 25-400MG QD ORAL
     Route: 048
     Dates: start: 20050301

REACTIONS (2)
  - DEPRESSION [None]
  - GASTROINTESTINAL HAEMORRHAGE [None]
